FAERS Safety Report 18973677 (Version 1)
Quarter: 2021Q1

REPORT INFORMATION
  Report Type: Spontaneous
  Country: US (occurrence: US)
  Receive Date: 20210305
  Receipt Date: 20210305
  Transmission Date: 20210420
  Serious: Yes (Hospitalization, Other)
  Sender: FDA-Public Use
  Company Number: US-ASTRAZENECA-2021A096401

PATIENT
  Age: 29168 Day
  Sex: Female
  Weight: 56.2 kg

DRUGS (2)
  1. SYMBICORT [Suspect]
     Active Substance: BUDESONIDE\FORMOTEROL FUMARATE DIHYDRATE
     Indication: CHRONIC OBSTRUCTIVE PULMONARY DISEASE
     Dosage: 160/4.5 MCG
     Route: 055
  2. BREZTRI AEROSPHERE [Suspect]
     Active Substance: BUDESONIDE\FORMOTEROL\GLYCOPYRRONIUM
     Indication: CHRONIC OBSTRUCTIVE PULMONARY DISEASE
     Dosage: 160/ 9/ 4.8 MCG 2 PUFFS TWO TIMES A DAY
     Route: 055

REACTIONS (14)
  - Pulmonary thrombosis [Unknown]
  - Pulmonary oedema [Unknown]
  - COVID-19 [Unknown]
  - Feeling abnormal [Unknown]
  - Dysphonia [Not Recovered/Not Resolved]
  - Oropharyngeal discomfort [Not Recovered/Not Resolved]
  - Thrombosis [Unknown]
  - Weight decreased [Recovering/Resolving]
  - Dyspnoea [Unknown]
  - Peripheral swelling [Unknown]
  - Gait disturbance [Unknown]
  - Haemothorax [Unknown]
  - Vascular rupture [Unknown]
  - Device malfunction [Unknown]

NARRATIVE: CASE EVENT DATE: 20210226
